FAERS Safety Report 21232360 (Version 1)
Quarter: 2022Q3

REPORT INFORMATION
  Report Type: Spontaneous
  Country: NL (occurrence: NL)
  Receive Date: 20220819
  Receipt Date: 20220819
  Transmission Date: 20221027
  Serious: Yes (Death, Hospitalization, Other)
  Sender: FDA-Public Use
  Company Number: NL-Indoco-000340

PATIENT
  Age: 23 Year
  Sex: Male

DRUGS (2)
  1. OLANZAPINE [Suspect]
     Active Substance: OLANZAPINE
     Indication: Psychotic disorder
     Dosage: INCREASE FROM 20 TO 25 MG AND LATER DECREASED TO 15 MG (DAY 21)
     Route: 048
  2. CLOZAPINE [Suspect]
     Active Substance: CLOZAPINE
     Indication: Psychotic disorder
     Dosage: INCREASED WITH 25 MG/D EVERY 2?DAYS, 250 MG AT DAY 21
     Route: 048

REACTIONS (1)
  - Intestinal pseudo-obstruction [Fatal]
